FAERS Safety Report 21802921 (Version 1)
Quarter: 2022Q4

REPORT INFORMATION
  Report Type: Spontaneous
  Country: US (occurrence: US)
  Receive Date: 20221231
  Receipt Date: 20221231
  Transmission Date: 20230113
  Serious: No
  Sender: FDA-Public Use
  Company Number: US-ACORDA-ACO_173394_2022

PATIENT
  Age: 78 Year
  Sex: Female
  Weight: 58.957 kg

DRUGS (3)
  1. INBRIJA [Suspect]
     Active Substance: LEVODOPA
     Indication: Parkinson^s disease
     Dosage: 2 DOSAGE FORM (84 MG), PRN (NOT TO EXCEED 5 DOSES A DAY)
     Dates: start: 20220710, end: 20221205
  2. INBRIJA [Suspect]
     Active Substance: LEVODOPA
     Indication: On and off phenomenon
  3. STALEVO [Concomitant]
     Active Substance: CARBIDOPA\ENTACAPONE\LEVODOPA
     Indication: Product used for unknown indication
     Dosage: UNKNOWN
     Route: 065

REACTIONS (7)
  - Device difficult to use [Unknown]
  - Incorrect route of product administration [Unknown]
  - Device issue [Unknown]
  - Product physical issue [Unknown]
  - Drug effect less than expected [Unknown]
  - Incorrect dose administered [Unknown]
  - Therapy cessation [Unknown]

NARRATIVE: CASE EVENT DATE: 20220710
